FAERS Safety Report 14793470 (Version 1)
Quarter: 2018Q2

REPORT INFORMATION
  Report Type: Spontaneous
  Country: NZ (occurrence: NZ)
  Receive Date: 20180423
  Receipt Date: 20180423
  Transmission Date: 20180711
  Serious: Yes (Other)
  Sender: FDA-Public Use
  Company Number: NZ-LPDUSPRD-20180641

PATIENT
  Age: 16 Year
  Sex: Female

DRUGS (1)
  1. FERINJECT [Suspect]
     Active Substance: FERRIC CARBOXYMALTOSE
     Dosage: UNKNOWN
     Route: 040

REACTIONS (4)
  - Urticaria [Unknown]
  - Tachypnoea [Unknown]
  - Bradycardia [Unknown]
  - Hypotension [Unknown]
